FAERS Safety Report 5838259-6 (Version None)
Quarter: 2008Q3

REPORT INFORMATION
  Report Type: 
  Country: None (occurrence: None)
  Receive Date: 20080808
  Receipt Date: 20080804
  Transmission Date: 20090109
  Serious: Yes (Hospitalization)
  Sender: FDA-Public Use
  Company Number: FR-AVENTIS-200812903FR

PATIENT
  Age: 65 Year
  Sex: Female

DRUGS (6)
  1. LOVENOX [Suspect]
     Route: 058
     Dates: start: 20080712, end: 20080716
  2. HEPARIN SODIUM [Suspect]
     Route: 042
     Dates: start: 20080712, end: 20080712
  3. SELOKEN                            /00376902/ [Suspect]
     Route: 048
     Dates: start: 20080712, end: 20080716
  4. TAHOR [Concomitant]
     Route: 048
     Dates: start: 20080712, end: 20080716
  5. INIPOMP                            /01263201/ [Concomitant]
     Route: 048
     Dates: start: 20080712, end: 20080716
  6. CONTRAST MEDIA [Concomitant]
     Route: 042
     Dates: start: 20080712, end: 20080712

REACTIONS (1)
  - ACUTE GENERALISED EXANTHEMATOUS PUSTULOSIS [None]
